FAERS Safety Report 4364543-1 (Version None)
Quarter: 2004Q2

REPORT INFORMATION
  Report Type: 
  Country: None (occurrence: None)
  Receive Date: 20040525
  Receipt Date: 20040504
  Transmission Date: 20050107
  Serious: Yes (Death, Hospitalization)
  Sender: FDA-Public Use
  Company Number: US-BRISTOL-MYERS SQUIBB COMPANY-12578076

PATIENT
  Age: 59 Year
  Sex: Male

DRUGS (10)
  1. ERBITUX [Suspect]
     Indication: COLORECTAL CANCER
     Route: 042
  2. IRINOTECAN [Concomitant]
  3. DIPHENHYDRAMINE HCL [Concomitant]
     Indication: PREMEDICATION
     Route: 048
  4. DECADRON [Concomitant]
     Indication: PREMEDICATION
     Route: 048
  5. ENULOSE [Concomitant]
     Route: 048
     Dates: start: 20040319
  6. CLEOCIN GEL [Concomitant]
     Dates: start: 20040326
  7. DURAGESIC [Concomitant]
     Route: 062
     Dates: start: 20040326
  8. BACLOFEN [Concomitant]
     Route: 048
     Dates: start: 20040402
  9. COMPAZINE [Concomitant]
     Route: 048
     Dates: start: 20040409
  10. MEGACE [Concomitant]
     Dates: start: 20040409

REACTIONS (5)
  - COLON CANCER METASTATIC [None]
  - CYTOMEGALOVIRUS INFECTION [None]
  - INTESTINAL OBSTRUCTION [None]
  - PERITONITIS [None]
  - PNEUMOCYSTIS CARINII PNEUMONIA [None]
